FAERS Safety Report 21469210 (Version 1)
Quarter: 2022Q4

REPORT INFORMATION
  Report Type: Report from Study
  Country: US (occurrence: US)
  Receive Date: 20221018
  Receipt Date: 20221018
  Transmission Date: 20230113
  Serious: No
  Sender: FDA-Public Use
  Company Number: US-ABBVIE-21K-163-4042207-00

PATIENT
  Sex: Male

DRUGS (2)
  1. HUMIRA [Suspect]
     Active Substance: ADALIMUMAB
     Indication: Crohn^s disease
     Route: 058
  2. HUMIRA [Suspect]
     Active Substance: ADALIMUMAB
     Dosage: DAY 1
     Route: 058
     Dates: start: 20210803, end: 20210803

REACTIONS (18)
  - Salivary hypersecretion [Unknown]
  - Gastrointestinal sounds abnormal [Unknown]
  - Flatulence [Unknown]
  - Insomnia [Not Recovered/Not Resolved]
  - Malaise [Recovered/Resolved]
  - Asthenia [Unknown]
  - Myalgia [Unknown]
  - Muscular weakness [Unknown]
  - Diarrhoea [Recovering/Resolving]
  - Haematochezia [Unknown]
  - Device breakage [Unknown]
  - Arthralgia [Unknown]
  - Off label use [Unknown]
  - Frequent bowel movements [Unknown]
  - Drooling [Unknown]
  - COVID-19 [Unknown]
  - Loss of personal independence in daily activities [Unknown]
  - Abdominal pain [Unknown]

NARRATIVE: CASE EVENT DATE: 20210101
